FAERS Safety Report 6418401-9 (Version None)
Quarter: 2009Q4

REPORT INFORMATION
  Report Type: 
  Country: None (occurrence: None)
  Receive Date: 20091021
  Receipt Date: 20090708
  Transmission Date: 20100525
  Serious: No
  Sender: FDA-Public Use
  Company Number: ALL1-2009-01865

PATIENT
  Age: 62 Year
  Sex: Male
  Weight: 72.6 kg

DRUGS (5)
  1. VYVANSE [Suspect]
     Indication: ATTENTION DEFICIT/HYPERACTIVITY DISORDER
     Dosage: 30 MG, 1X/DAY:QD, ORAL : 50 MG, 1X/DAY:QD, ORAL : 70 MG, 1X/DAY:QD, ORAL
     Route: 048
     Dates: start: 20080101, end: 20080101
  2. VYVANSE [Suspect]
     Indication: ATTENTION DEFICIT/HYPERACTIVITY DISORDER
     Dosage: 30 MG, 1X/DAY:QD, ORAL : 50 MG, 1X/DAY:QD, ORAL : 70 MG, 1X/DAY:QD, ORAL
     Route: 048
     Dates: start: 20080101, end: 20090601
  3. VYVANSE [Suspect]
     Indication: ATTENTION DEFICIT/HYPERACTIVITY DISORDER
     Dosage: 30 MG, 1X/DAY:QD, ORAL : 50 MG, 1X/DAY:QD, ORAL : 70 MG, 1X/DAY:QD, ORAL
     Route: 048
     Dates: start: 20090601
  4. WELLBUTRIN XL [Concomitant]
  5. HYDROCHLOROTHIAZIDE [Concomitant]

REACTIONS (4)
  - BRUXISM [None]
  - FEELING ABNORMAL [None]
  - TOOTH FRACTURE [None]
  - UNEVALUABLE EVENT [None]
